FAERS Safety Report 20734781 (Version 1)
Quarter: 2022Q2

REPORT INFORMATION
  Report Type: Spontaneous
  Country: US (occurrence: None)
  Receive Date: 20220420
  Receipt Date: 20220420
  Transmission Date: 20220721
  Serious: Yes (Hospitalization, Other)
  Sender: FDA-Public Use
  Company Number: None

PATIENT
  Age: 72 Year
  Sex: Male
  Weight: 100.35 kg

DRUGS (1)
  1. CIPROFLOXACIN [Suspect]
     Active Substance: CIPROFLOXACIN
     Indication: Sepsis
     Dosage: OTHER ROUTE : INTRAVENOUSLY;?
     Route: 050
     Dates: start: 20211117

REACTIONS (4)
  - Tendon rupture [None]
  - Peripheral swelling [None]
  - Fall [None]
  - Tendonitis [None]

NARRATIVE: CASE EVENT DATE: 20220322
